FAERS Safety Report 4560957-5 (Version None)
Quarter: 2005Q1

REPORT INFORMATION
  Report Type: 
  Country: None (occurrence: None)
  Receive Date: 20050126
  Receipt Date: 20040329
  Transmission Date: 20050727
  Serious: No
  Sender: FDA-Public Use
  Company Number: US-BRISTOL-MYERS SQUIBB COMPANY-12544789

PATIENT
  Age: 66 Year
  Sex: Male
  Weight: 82 kg

DRUGS (3)
  1. GLUCOPHAGE [Suspect]
     Indication: DIABETES MELLITUS
     Dosage: JAN-2004 INCREASED TO 750MG PER DAY
     Route: 048
  2. SYNTHROID [Concomitant]
  3. VITAMIN B-12 [Concomitant]

REACTIONS (1)
  - BLOOD GLUCOSE INCREASED [None]
